FAERS Safety Report 5727517-1 (Version None)
Quarter: 2008Q2

REPORT INFORMATION
  Report Type: 
  Country: None (occurrence: None)
  Receive Date: 20080430
  Receipt Date: 20080421
  Transmission Date: 20081010
  Serious: Yes (Death)
  Sender: FDA-Public Use
  Company Number: A-NJ2008-20321

PATIENT
  Age: 50 Year
  Sex: Female

DRUGS (2)
  1. TRACLEER [Suspect]
     Indication: PULMONARY HYPERTENSION
     Dosage: ORAL
     Route: 048
  2. VENTAVIS [Suspect]
     Indication: PULMONARY HYPERTENSION
     Dosage: RESPIRATORY
     Route: 055

REACTIONS (1)
  - DEATH [None]
